FAERS Safety Report 5385105-3 (Version None)
Quarter: 2007Q3

REPORT INFORMATION
  Report Type: 
  Country: None (occurrence: None)
  Receive Date: 20070706
  Receipt Date: 20070706
  Transmission Date: 20080115
  Serious: Yes (Death)
  Sender: FDA-Public Use
  Company Number: None

PATIENT
  Age: 48 Year
  Sex: Female
  Weight: 66.2252 kg

DRUGS (5)
  1. ACETADOTE [Suspect]
     Indication: DRUG TOXICITY
     Dosage: 150 MG/KG, 50 MG/KG, 100 MG/K  OVER 1, 4, 16 HRS  IV DRIP
     Route: 041
  2. LOPRESSOR [Concomitant]
  3. SODIUM BICARBONATE [Concomitant]
  4. GOLYTELY [Concomitant]
  5. ACTIVATED CHARCOAL [Concomitant]

REACTIONS (4)
  - DRUG INEFFECTIVE [None]
  - HEPATIC ENCEPHALOPATHY [None]
  - INTERNATIONAL NORMALISED RATIO INCREASED [None]
  - LIVER FUNCTION TEST ABNORMAL [None]
